FAERS Safety Report 16218441 (Version 1)
Quarter: 2019Q2

REPORT INFORMATION
  Report Type: Spontaneous
  Country: US (occurrence: US)
  Receive Date: 20190419
  Receipt Date: 20190419
  Transmission Date: 20190711
  Serious: Yes (Other)
  Sender: FDA-Public Use
  Company Number: US-AMGEN INC.-USASP2019058728

PATIENT
  Sex: Female

DRUGS (1)
  1. AIMOVIG [Suspect]
     Active Substance: ERENUMAB-AOOE
     Indication: MIGRAINE
     Dosage: UNK
     Route: 065
     Dates: start: 201810

REACTIONS (14)
  - Constipation [Unknown]
  - Depression [Unknown]
  - Ileus paralytic [Unknown]
  - Fatigue [Unknown]
  - Tachycardia [Recovering/Resolving]
  - Food intolerance [Unknown]
  - Anxiety [Recovering/Resolving]
  - Dark circles under eyes [Recovering/Resolving]
  - Bradycardia [Recovering/Resolving]
  - Cough [Not Recovered/Not Resolved]
  - Rash pruritic [Unknown]
  - Panic attack [Unknown]
  - Hormone level abnormal [Not Recovered/Not Resolved]
  - Gastrointestinal sounds abnormal [Unknown]

NARRATIVE: CASE EVENT DATE: 2018
